FAERS Safety Report 12256118 (Version 1)
Quarter: 2016Q2

REPORT INFORMATION
  Report Type: Spontaneous
  Country: US (occurrence: US)
  Receive Date: 20160412
  Receipt Date: 20160412
  Transmission Date: 20160815
  Serious: No
  Sender: FDA-Public Use
  Company Number: US-PFIZER INC-2016181809

PATIENT
  Sex: Female

DRUGS (2)
  1. PRISTIQ EXTENDED-RELEASE [Suspect]
     Active Substance: DESVENLAFAXINE SUCCINATE
     Dosage: UNK
  2. TRYPTOPHAN [Suspect]
     Active Substance: TRYPTOPHAN
     Indication: SLEEP DISORDER
     Dosage: UNK

REACTIONS (2)
  - Insomnia [Unknown]
  - Condition aggravated [Unknown]
